FAERS Safety Report 9911503 (Version 1)
Quarter: 2014Q1

REPORT INFORMATION
  Report Type: Report from Study
  Country: NL (occurrence: NL)
  Receive Date: 20140219
  Receipt Date: 20140219
  Transmission Date: 20141002
  Serious: Yes (Other)
  Sender: FDA-Public Use
  Company Number: PHHY2014NL019636

PATIENT
  Age: 70 Year
  Sex: Female

DRUGS (3)
  1. ZOMETA [Suspect]
     Indication: BREAST CANCER METASTATIC
     Dosage: 4 MG, PER 100 ML, ONCE PER 4 WEEKS
     Route: 042
  2. ZOMETA [Suspect]
     Dosage: 4 MG, PER 100 ML, ONCE PER 4 WEEKS
     Route: 042
     Dates: start: 20121120
  3. ZOMETA [Suspect]
     Dosage: 4 MG, PER 100 ML, ONCE PER 4 WEEKS
     Route: 042
     Dates: start: 20140120

REACTIONS (2)
  - Abscess jaw [Recovering/Resolving]
  - Osteitis [Unknown]
